FAERS Safety Report 4351159-6 (Version None)
Quarter: 2004Q2

REPORT INFORMATION
  Report Type: 
  Country: None (occurrence: None)
  Receive Date: 20040428
  Receipt Date: 20040219
  Transmission Date: 20050107
  Serious: Yes (Other)
  Sender: FDA-Public Use
  Company Number: US-JNJFOC-20040204781

PATIENT
  Age: 41 Year
  Sex: Female
  Weight: 67.1324 kg

DRUGS (2)
  1. ULTRAM [Suspect]
     Indication: NECK PAIN
     Dosage: 50 MG, IN 6 HOUR, ORAL
     Route: 048
     Dates: start: 20040217, end: 20040217
  2. PREVACID [Concomitant]

REACTIONS (2)
  - ANAPHYLACTIC REACTION [None]
  - HALLUCINATION [None]
